FAERS Safety Report 24333569 (Version 1)
Quarter: 2024Q3

REPORT INFORMATION
  Report Type: Spontaneous
  Country: US (occurrence: US)
  Receive Date: 20240918
  Receipt Date: 20240918
  Transmission Date: 20241016
  Serious: No
  Sender: TEVA
  Company Number: US-TEVA-VS-3239432

PATIENT
  Sex: Female

DRUGS (2)
  1. HYDROXYUREA [Suspect]
     Active Substance: HYDROXYUREA
     Indication: Product used for unknown indication
     Dosage: UNKNOWN
     Route: 065
  2. JAKAFI [Suspect]
     Active Substance: RUXOLITINIB
     Indication: Polycythaemia vera
     Dosage: BID
     Route: 065

REACTIONS (7)
  - Insomnia [Unknown]
  - Decreased activity [Unknown]
  - Fatigue [Unknown]
  - Lipids increased [Unknown]
  - Hypertension [Unknown]
  - Dizziness [Unknown]
  - Asthma [Unknown]
